FAERS Safety Report 23637883 (Version 3)
Quarter: 2024Q2

REPORT INFORMATION
  Report Type: Spontaneous
  Country: JP (occurrence: JP)
  Receive Date: 20240315
  Receipt Date: 20240527
  Transmission Date: 20240715
  Serious: Yes (Other)
  Sender: FDA-Public Use
  Company Number: JP-OTSUKA-2024_006665

PATIENT
  Age: 53 Year
  Sex: Male

DRUGS (8)
  1. BUSULFEX [Suspect]
     Active Substance: BUSULFAN
     Indication: Stem cell transplant
     Dosage: 3.2 MG PER KG ON DAYS -8 TO -5
     Route: 041
     Dates: start: 202008
  2. BUSULFEX [Suspect]
     Active Substance: BUSULFAN
     Indication: Premedication
  3. THIOTEPA [Suspect]
     Active Substance: THIOTEPA
     Indication: Stem cell transplant
     Dosage: 5 MG PER KG ON DAYS -4 TO -3
     Route: 065
     Dates: start: 202008
  4. THIOTEPA [Suspect]
     Active Substance: THIOTEPA
     Indication: Premedication
  5. METHOTREXATE [Suspect]
     Active Substance: METHOTREXATE
     Indication: Central nervous system lymphoma
     Dosage: HIGH-DOSE, 3.5 G PER SQUARE METER, EVERY THREE WEEKS
     Route: 065
  6. METHOTREXATE [Suspect]
     Active Substance: METHOTREXATE
     Dosage: 15 MG PER BODY
     Route: 065
  7. CYTARABINE [Suspect]
     Active Substance: CYTARABINE
     Indication: Central nervous system lymphoma
     Dosage: HIGH-DOSE, 3G PER SQUARE METER TWICE A DAY
     Route: 065
  8. CYTARABINE [Suspect]
     Active Substance: CYTARABINE
     Dosage: 40 MG PER BODY
     Route: 065

REACTIONS (2)
  - Immune thrombocytopenia [Recovered/Resolved]
  - Platelet engraftment failure [Unknown]
